FAERS Safety Report 11442415 (Version 1)
Quarter: 2015Q3

REPORT INFORMATION
  Report Type: Spontaneous
  Country: US (occurrence: US)
  Receive Date: 20150901
  Receipt Date: 20150901
  Transmission Date: 20151125
  Serious: Yes (Other)
  Sender: FDA-Public Use
  Company Number: US-GE HEALTHCARE MEDICAL DIAGNOSTICS-OMPQ-PR-1508S-1569

PATIENT
  Age: 38 Year
  Sex: Female

DRUGS (2)
  1. OMNIPAQUE [Suspect]
     Active Substance: IOHEXOL
     Indication: ABDOMINAL PAIN LOWER
     Route: 042
     Dates: start: 20150825, end: 20150825
  2. OMNIPAQUE [Suspect]
     Active Substance: IOHEXOL
     Indication: DIAGNOSTIC PROCEDURE

REACTIONS (3)
  - Wheezing [Recovering/Resolving]
  - Sneezing [Recovering/Resolving]
  - Throat irritation [Recovering/Resolving]

NARRATIVE: CASE EVENT DATE: 20150825
